FAERS Safety Report 8474887-X (Version None)
Quarter: 2012Q2

REPORT INFORMATION
  Report Type: 
  Country: None (occurrence: None)
  Receive Date: 20120621
  Receipt Date: 20120613
  Transmission Date: 20120825
  Serious: Yes (Death)
  Sender: FDA-Public Use
  Company Number: TCI2012A03116

PATIENT
  Age: 9 Decade
  Sex: Male

DRUGS (2)
  1. ROZEREM [Suspect]
     Dosage: 8 MG (8 MG, 1 IN 1 D) PER ORAL
     Route: 048
  2. INVEGA [Concomitant]

REACTIONS (4)
  - BLOOD PROLACTIN INCREASED [None]
  - DEPRESSED LEVEL OF CONSCIOUSNESS [None]
  - THYROID FUNCTION TEST ABNORMAL [None]
  - CARDIAC FAILURE [None]
